FAERS Safety Report 18144865 (Version 1)
Quarter: 2020Q3

REPORT INFORMATION
  Report Type: Spontaneous
  Country: US (occurrence: US)
  Receive Date: 20200813
  Receipt Date: 20200813
  Transmission Date: 20201103
  Serious: Yes (Other)
  Sender: FDA-Public Use
  Company Number: None

PATIENT
  Age: 41 Year
  Sex: Female
  Weight: 88.47 kg

DRUGS (3)
  1. DECARA [Concomitant]
  2. EVEROLIMUS. [Suspect]
     Active Substance: EVEROLIMUS
     Indication: BREAST CANCER FEMALE
     Route: 048
     Dates: start: 20200609, end: 20200813
  3. BUPROPRION [Concomitant]
     Active Substance: BUPROPION

REACTIONS (1)
  - Disease progression [None]

NARRATIVE: CASE EVENT DATE: 20200813
